FAERS Safety Report 6927520-X (Version None)
Quarter: 2010Q3

REPORT INFORMATION
  Report Type: 
  Country: None (occurrence: None)
  Receive Date: 20100817
  Receipt Date: 20100803
  Transmission Date: 20110219
  Serious: Yes (Hospitalization, Other)
  Sender: FDA-Public Use
  Company Number: DE-PAR PHARMACEUTICAL, INC-2010SCPR001970

PATIENT

DRUGS (2)
  1. DEXAMETHASONE [Suspect]
     Indication: METASTASES TO MENINGES
     Dosage: 4 MG, EVERY 5 DAYS
     Route: 037
  2. METHOTREXATE [Suspect]
     Indication: METASTASES TO MENINGES
     Dosage: 15 MG, EVERY 5 DAYS BY LUMBAR PUNTURE
     Route: 037

REACTIONS (10)
  - CSF LACTATE INCREASED [None]
  - CSF PROTEIN INCREASED [None]
  - DIARRHOEA HAEMORRHAGIC [None]
  - FAECAL INCONTINENCE [None]
  - MYELOPATHY [None]
  - NERVOUS SYSTEM DISORDER [None]
  - PANCYTOPENIA [None]
  - PARAPARESIS [None]
  - URINARY RETENTION [None]
  - VOMITING [None]
